FAERS Safety Report 9227472 (Version 1)
Quarter: 2013Q1

REPORT INFORMATION
  Report Type: Spontaneous
  Country: US (occurrence: None)
  Receive Date: 20121004
  Receipt Date: 20121004
  Transmission Date: 20140127
  Serious: Yes (Other)
  Sender: FDA-Public Use
  Company Number: PHEH2012US002326

PATIENT
  Age: 56 Year
  Sex: Female

DRUGS (2)
  1. COMBIPATCH [Suspect]
     Dates: end: 201009
  2. ESTROGENS CONJUGATED ( ESTROGENS CONJUGATED) [Concomitant]

REACTIONS (4)
  - Depression [None]
  - Anxiety [None]
  - Hot flush [None]
  - Night sweats [None]
